FAERS Safety Report 5957068-0 (Version None)
Quarter: 2008Q4

REPORT INFORMATION
  Report Type: 
  Country: None (occurrence: None)
  Receive Date: 20081118
  Receipt Date: 20081109
  Transmission Date: 20090506
  Serious: Yes (Other)
  Sender: FDA-Public Use
  Company Number: PHHY2008GB28304

PATIENT
  Sex: Male

DRUGS (1)
  1. CLOZARIL [Suspect]
     Indication: SCHIZOPHRENIA
     Dosage: UNK
     Dates: start: 20080626

REACTIONS (3)
  - FULL BLOOD COUNT INCREASED [None]
  - OEDEMA PERIPHERAL [None]
  - PLATELET COUNT INCREASED [None]
